FAERS Safety Report 6173099-2 (Version None)
Quarter: 2009Q2

REPORT INFORMATION
  Report Type: 
  Country: None (occurrence: None)
  Receive Date: 20090430
  Receipt Date: 20090422
  Transmission Date: 20091009
  Serious: Yes (Other)
  Sender: FDA-Public Use
  Company Number: US-ROCHE-623386

PATIENT
  Sex: Female

DRUGS (11)
  1. BONIVA [Suspect]
     Indication: OSTEOPOROSIS
     Dosage: FREQUENCY: X1.
     Route: 042
     Dates: start: 20090224, end: 20090224
  2. BONIVA [Suspect]
     Route: 048
  3. DIOVAN HCT [Concomitant]
     Indication: HYPERTENSION
     Dosage: DRUG: DIOVAN HCT 12.5.
     Route: 048
  4. SYNTHROID [Concomitant]
     Indication: HYPOTHYROIDISM
     Route: 048
  5. PREDNISONE [Concomitant]
     Route: 048
  6. COMBIVENT [Concomitant]
     Dosage: DOSAGE: TWO PUFFS FOUR TIMES DAILY, AS NEEDED.
     Route: 055
  7. SPIRIVA [Concomitant]
     Route: 048
  8. FLONASE [Concomitant]
  9. MAGNESIUM OXIDE [Concomitant]
  10. CALCIUM/VITAMIN D [Concomitant]
  11. VITAMINS-MULTIVITAMIN [Concomitant]
     Dosage: DRUG: MULTIPLE VITAMINS.

REACTIONS (21)
  - ABDOMINAL DISCOMFORT [None]
  - ANXIETY [None]
  - CHEST PAIN [None]
  - DIZZINESS [None]
  - DYSURIA [None]
  - EXOSTOSIS [None]
  - FATIGUE [None]
  - FOOT FRACTURE [None]
  - HEADACHE [None]
  - HYPERTENSION [None]
  - JOINT SWELLING [None]
  - LARYNGITIS [None]
  - MUSCLE SPASMS [None]
  - NEUROPATHY PERIPHERAL [None]
  - OEDEMA PERIPHERAL [None]
  - OSTEOARTHRITIS [None]
  - OSTEOCHONDROSIS [None]
  - PALPITATIONS [None]
  - SCOLIOSIS [None]
  - SPONDYLOLYSIS [None]
  - VARICOSE VEIN [None]
